FAERS Safety Report 4700021-5 (Version None)
Quarter: 2005Q2

REPORT INFORMATION
  Report Type: 
  Country: None (occurrence: None)
  Receive Date: 20050623
  Receipt Date: 20050609
  Transmission Date: 20051028
  Serious: Yes (Other)
  Sender: FDA-Public Use
  Company Number: 200313267BCC

PATIENT
  Age: 77 Year
  Sex: Male
  Weight: 81.6475 kg

DRUGS (8)
  1. ALEVE [Suspect]
     Indication: DEMENTIA ALZHEIMER'S TYPE
     Dosage: BID, ORAL
     Route: 048
     Dates: start: 20011127
  2. ASPIRIN [Concomitant]
     Indication: PROPHYLAXIS
  3. GINKGO BILOBA [Concomitant]
  4. VITAMIN K [Concomitant]
  5. SELENIUM SULFIDE [Concomitant]
  6. MSM [Concomitant]
  7. MULTI-VITAMIN [Concomitant]
  8. OMEGA 3 [Concomitant]

REACTIONS (2)
  - CONFUSIONAL STATE [None]
  - TRANSIENT ISCHAEMIC ATTACK [None]
